FAERS Safety Report 4914372-2 (Version None)
Quarter: 2006Q1

REPORT INFORMATION
  Report Type: 
  Country: None (occurrence: None)
  Receive Date: 20060213
  Receipt Date: 20060201
  Transmission Date: 20060701
  Serious: Yes (Hospitalization)
  Sender: FDA-Public Use
  Company Number: 2006BI001991

PATIENT
  Age: 58 Year
  Sex: Female
  Weight: 53.0709 kg

DRUGS (2)
  1. AVONEX [Suspect]
     Indication: MULTIPLE SCLEROSIS
     Dosage: 30 UG; QW; IM
     Route: 030
  2. AVONEX [Suspect]
     Indication: MULTIPLE SCLEROSIS
     Dosage: 30 UG; QW; IM
     Route: 030

REACTIONS (5)
  - CLOSTRIDIUM COLITIS [None]
  - HYSTERECTOMY [None]
  - INFECTION [None]
  - ORAL CANDIDIASIS [None]
  - ORAL INTAKE REDUCED [None]
